FAERS Safety Report 15867243 (Version 1)
Quarter: 2019Q1

REPORT INFORMATION
  Report Type: Spontaneous
  Country: US (occurrence: US)
  Receive Date: 20190125
  Receipt Date: 20190125
  Transmission Date: 20190417
  Serious: Yes (Disabling)
  Sender: FDA-Public Use
  Company Number: None

PATIENT
  Age: 28 Year
  Sex: Female
  Weight: 67.5 kg

DRUGS (6)
  1. CIPROFLOXACIN. [Suspect]
     Active Substance: CIPROFLOXACIN
     Indication: KIDNEY INFECTION
     Dosage: ?          QUANTITY:20 CAPSULE(S);?
     Route: 048
     Dates: start: 20180315, end: 20180321
  2. FISHOIL [Concomitant]
  3. ASHWAGHANDA [Concomitant]
  4. GABAPENTIN 33200MG DAILY [Concomitant]
  5. FOLATE [Concomitant]
     Active Substance: FOLATE SODIUM
  6. VITAMIN B12 [Concomitant]
     Active Substance: CYANOCOBALAMIN

REACTIONS (8)
  - Tension [None]
  - Tinnitus [None]
  - Nerve injury [None]
  - Tendon pain [None]
  - Chest pain [None]
  - Tendonitis [None]
  - Tremor [None]
  - Joint injury [None]

NARRATIVE: CASE EVENT DATE: 20180315
